FAERS Safety Report 18202264 (Version 1)
Quarter: 2020Q3

REPORT INFORMATION
  Report Type: Spontaneous
  Country: US (occurrence: US)
  Receive Date: 20200827
  Receipt Date: 20200827
  Transmission Date: 20201103
  Serious: No
  Sender: FDA-Public Use
  Company Number: US-LUPIN PHARMACEUTICALS INC.-2019-07907

PATIENT
  Age: 74 Year
  Sex: Female
  Weight: 90.7 kg

DRUGS (2)
  1. AMLODIPINE BESYLATE TABLETS USP, 5 MG [Suspect]
     Active Substance: AMLODIPINE BESYLATE
     Indication: BLOOD PRESSURE ABNORMAL
     Dosage: UNK (OLD FORMULATION)
     Route: 048
     Dates: start: 201808
  2. AMLODIPINE BESYLATE TABLETS USP, 5 MG [Suspect]
     Active Substance: AMLODIPINE BESYLATE
     Dosage: UNK (NEWFORMULATION)
     Route: 048
     Dates: start: 201903

REACTIONS (4)
  - Wrong technique in product usage process [Unknown]
  - Peripheral swelling [Recovered/Resolved]
  - Dizziness [Not Recovered/Not Resolved]
  - Drug ineffective [Unknown]

NARRATIVE: CASE EVENT DATE: 201903
